FAERS Safety Report 9127454 (Version 1)
Quarter: 2013Q1

REPORT INFORMATION
  Report Type: Spontaneous
  Country: US (occurrence: US)
  Receive Date: 20130228
  Receipt Date: 20130228
  Transmission Date: 20140127
  Serious: No
  Sender: FDA-Public Use
  Company Number: US-GLAXOSMITHKLINE-A0977512A

PATIENT
  Age: 16 Year
  Sex: Female
  Weight: 74.1 kg

DRUGS (2)
  1. LAMICTAL [Suspect]
     Indication: EPILEPSY
     Dosage: 100MG UNKNOWN
     Route: 048
  2. DOCOSAHEXAENOIC ACID [Concomitant]
     Indication: PREGNANCY
     Route: 065
     Dates: start: 20120223

REACTIONS (1)
  - Exposure during pregnancy [Unknown]
